FAERS Safety Report 7797252-7 (Version None)
Quarter: 2011Q4

REPORT INFORMATION
  Report Type: 
  Country: None (occurrence: None)
  Receive Date: 20111003
  Receipt Date: 20110923
  Transmission Date: 20120403
  Serious: Yes (Hospitalization)
  Sender: FDA-Public Use
  Company Number: DSA_47365_2011

PATIENT
  Sex: Female

DRUGS (7)
  1. CITALOPRAM [Concomitant]
  2. LORAZEPAM [Concomitant]
  3. XENAZINE [Suspect]
     Indication: HUNTINGTON'S DISEASE
     Dosage: (25 MG BID ORAL)
     Route: 048
     Dates: start: 20110726, end: 20110729
  4. HALDOL [Concomitant]
  5. RISPERIDONE [Concomitant]
  6. DIVALPROEX SODIUM [Concomitant]
  7. AMANTADINE HCL [Concomitant]

REACTIONS (8)
  - DYSSTASIA [None]
  - CONDITION AGGRAVATED [None]
  - APHAGIA [None]
  - LETHARGY [None]
  - APHASIA [None]
  - PYREXIA [None]
  - URINARY TRACT INFECTION [None]
  - HUNTINGTON'S DISEASE [None]
